FAERS Safety Report 22366183 (Version 2)
Quarter: 2023Q2

REPORT INFORMATION
  Report Type: 
  Country: US (occurrence: US)
  Receive Date: 20230525
  Receipt Date: 20230614
  Transmission Date: 20230722
  Serious: No
  Sender: FDA-Public Use
  Company Number: US-PHARMING-PHAUS2023000386

PATIENT

DRUGS (1)
  1. JOENJA [Suspect]
     Active Substance: LENIOLISIB PHOSPHATE
     Indication: Activated PI3 kinase delta syndrome
     Dosage: 70 MILLIGRAM, BID
     Route: 048
     Dates: start: 20230417

REACTIONS (1)
  - No adverse event [Recovered/Resolved]

NARRATIVE: CASE EVENT DATE: 20230501
